FAERS Safety Report 4878790-3 (Version None)
Quarter: 2005Q4

REPORT INFORMATION
  Report Type: 
  Country: None (occurrence: None)
  Receive Date: 20051209
  Receipt Date: 20050601
  Transmission Date: 20060501
  Serious: Yes (Other)
  Sender: FDA-Public Use
  Company Number: USA-2003-0010602

PATIENT
  Age: 59 Year
  Sex: Female
  Weight: 102 kg

DRUGS (9)
  1. OXYCONTIN [Suspect]
     Indication: PAIN
  2. FLOVENT [Concomitant]
  3. FLONASE [Concomitant]
  4. FAMOTIDINE [Concomitant]
  5. NORTRIPTYLINE HCL [Concomitant]
  6. VIOXX [Concomitant]
  7. CLARITIN [Concomitant]
  8. DEXTROL [Concomitant]
  9. HYZAAR [Concomitant]

REACTIONS (7)
  - ANXIETY [None]
  - DEPRESSION [None]
  - DRUG DEPENDENCE [None]
  - DRUG INEFFECTIVE [None]
  - DRUG TOLERANCE [None]
  - DRUG WITHDRAWAL SYNDROME [None]
  - PAIN [None]
